FAERS Safety Report 14262350 (Version 1)
Quarter: 2017Q4

REPORT INFORMATION
  Report Type: Spontaneous
  Country: US (occurrence: US)
  Receive Date: 20171208
  Receipt Date: 20171208
  Transmission Date: 20180321
  Serious: Yes (Other)
  Sender: FDA-Public Use
  Company Number: None

PATIENT

DRUGS (2)
  1. ADRENALIN CHLORIDE [Suspect]
     Active Substance: EPINEPHRINE HYDROCHLORIDE
  2. ADRENALIN [Suspect]
     Active Substance: EPINEPHRINE

REACTIONS (2)
  - Circumstance or information capable of leading to medication error [None]
  - Product name confusion [None]

NARRATIVE: CASE EVENT DATE: 20171208
